FAERS Safety Report 23714422 (Version 2)
Quarter: 2024Q4

REPORT INFORMATION
  Report Type: Other
  Country: GB (occurrence: GB)
  Receive Date: 20240406
  Receipt Date: 20241003
  Transmission Date: 20250115
  Serious: Yes (Hospitalization, Other)
  Sender: GLENMARK
  Company Number: GB-GLENMARK PHARMACEUTICALS-2024GMK089756

PATIENT

DRUGS (128)
  1. OMEPRAZOLE [Suspect]
     Active Substance: OMEPRAZOLE
     Indication: Abdominal discomfort
     Dosage: 40 MILLIGRAM, QD (20 MG, 2X/DAY)
     Route: 065
     Dates: start: 20100917
  2. OMEPRAZOLE [Suspect]
     Active Substance: OMEPRAZOLE
     Dosage: 80 MILLIGRAM, QD (20 MG, 2X/DAY)
     Route: 065
     Dates: start: 20100917
  3. OMEPRAZOLE [Suspect]
     Active Substance: OMEPRAZOLE
     Dosage: 480 MILLIGRAM DAILY; 20 MG, 2X/DAY
     Route: 065
  4. OMEPRAZOLE [Suspect]
     Active Substance: OMEPRAZOLE
     Dosage: 80 MILLIGRAM DAILY; 20 MG, 2X/DAY
     Route: 065
     Dates: start: 20200917
  5. OMEPRAZOLE [Suspect]
     Active Substance: OMEPRAZOLE
     Dosage: 20 MG, QH (480 MILLIGRAM DAILY; 20 MG, 2X/DAY)
     Route: 065
  6. OMEPRAZOLE [Suspect]
     Active Substance: OMEPRAZOLE
     Dosage: 80 MILLIGRAM DAILY; 20 MG, 2X/DAY
     Route: 065
     Dates: start: 20200917
  7. OMEPRAZOLE [Suspect]
     Active Substance: OMEPRAZOLE
     Dosage: 20 MG, QH
     Route: 065
  8. OMEPRAZOLE [Suspect]
     Active Substance: OMEPRAZOLE
     Dosage: 40 MILLIGRAM, QD (20 MG, 2X/DAY)
     Route: 065
     Dates: start: 20100917
  9. OMEPRAZOLE [Suspect]
     Active Substance: OMEPRAZOLE
     Dosage: 20 MG, QH (480 MILLIGRAM DAILY; 20 MG, 2X/DAY)
     Route: 065
  10. OMEPRAZOLE [Suspect]
     Active Substance: OMEPRAZOLE
     Dosage: 80 MILLIGRAM, QD
     Route: 065
     Dates: start: 20100917
  11. OMEPRAZOLE [Suspect]
     Active Substance: OMEPRAZOLE
     Dosage: 20 MILLIGRAM, QD
     Route: 065
     Dates: start: 20100917
  12. OMEPRAZOLE [Suspect]
     Active Substance: OMEPRAZOLE
     Dosage: 20 MILLIGRAM, BID
     Route: 065
     Dates: start: 20100917
  13. OMEPRAZOLE [Suspect]
     Active Substance: OMEPRAZOLE
     Dosage: 20 MG, QH (480 MILLIGRAM DAILY; 20 MG, 2X/DAY)
     Route: 065
  14. AMINOPHYLLINE [Suspect]
     Active Substance: AMINOPHYLLINE
     Indication: Abdominal discomfort
     Dosage: 400 MILLIGRAM, QD
     Route: 065
     Dates: start: 20100917
  15. AMINOPHYLLINE [Suspect]
     Active Substance: AMINOPHYLLINE
     Dosage: 400 MILLIGRAM, QD
     Route: 065
     Dates: start: 20200917
  16. AMINOPHYLLINE [Suspect]
     Active Substance: AMINOPHYLLINE
     Dosage: 400 MILLIGRAM, QD
     Route: 065
  17. AMINOPHYLLINE [Suspect]
     Active Substance: AMINOPHYLLINE
     Dosage: 400 MILLIGRAM, QD
     Route: 065
  18. AMOXICILLIN [Suspect]
     Active Substance: AMOXICILLIN
     Indication: Product used for unknown indication
     Dosage: 125 MG/ 5 ML
     Route: 065
     Dates: start: 20210904
  19. AMOXICILLIN [Suspect]
     Active Substance: AMOXICILLIN
     Indication: Abdominal discomfort
     Dosage: 125 MG/ 5 ML
     Route: 065
  20. BIFIDOBACTERIUM LONGUM [Suspect]
     Active Substance: BIFIDOBACTERIUM LONGUM
     Indication: Abdominal discomfort
     Dosage: 750 MILLIGRAM
     Route: 065
  21. BIFIDOBACTERIUM LONGUM [Suspect]
     Active Substance: BIFIDOBACTERIUM LONGUM
     Indication: Depression
     Dosage: 750 MILLIGRAM
     Route: 065
  22. BIFIDOBACTERIUM LONGUM [Suspect]
     Active Substance: BIFIDOBACTERIUM LONGUM
     Dosage: 750 MILLIGRAM
     Route: 065
  23. BIFIDOBACTERIUM LONGUM [Suspect]
     Active Substance: BIFIDOBACTERIUM LONGUM
     Dosage: UNK
     Route: 065
  24. CARBAMAZEPINE [Suspect]
     Active Substance: CARBAMAZEPINE
     Indication: Product used for unknown indication
     Dosage: 750 MILLIGRAM, QD
     Route: 065
     Dates: start: 20100917
  25. CARBAMAZEPINE [Suspect]
     Active Substance: CARBAMAZEPINE
     Indication: Depression
     Dosage: 750 MILLIGRAM, QD
     Route: 065
     Dates: start: 20200917
  26. CARBAMAZEPINE [Suspect]
     Active Substance: CARBAMAZEPINE
     Dosage: 750 MILLIGRAM, QD
     Route: 065
  27. CARBAMAZEPINE [Suspect]
     Active Substance: CARBAMAZEPINE
     Dosage: UNK
     Route: 065
  28. CARBAMAZEPINE [Suspect]
     Active Substance: CARBAMAZEPINE
     Dosage: 750 MILLIGRAM, QD
     Route: 065
  29. CARBAMAZEPINE [Suspect]
     Active Substance: CARBAMAZEPINE
     Dosage: 750 MILLIGRAM, QD
     Route: 065
     Dates: start: 20210917
  30. CARBOCYSTEINE [Suspect]
     Active Substance: CARBOCYSTEINE
     Indication: Rheumatoid arthritis
     Dosage: 750 MILLIGRAM, QD
     Route: 065
  31. CARBOCYSTEINE [Suspect]
     Active Substance: CARBOCYSTEINE
     Dosage: 750 MILLIGRAM, QD
     Route: 065
     Dates: start: 20100917
  32. CARBOCYSTEINE [Suspect]
     Active Substance: CARBOCYSTEINE
     Dosage: 750 MILLIGRAM, QD
     Route: 065
     Dates: start: 20120917
  33. CARBOCYSTEINE [Suspect]
     Active Substance: CARBOCYSTEINE
     Dosage: 750 MILLIGRAM, QD
     Route: 065
  34. CARBOCYSTEINE [Suspect]
     Active Substance: CARBOCYSTEINE
     Dosage: 750 MILLIGRAM, QD
     Route: 065
     Dates: start: 20210917
  35. CHARCOAL ACTIVATED [Suspect]
     Active Substance: ACTIVATED CHARCOAL
     Indication: Product used for unknown indication
     Dosage: 750 MILLIGRAM, QD
     Route: 065
  36. CHARCOAL ACTIVATED [Suspect]
     Active Substance: ACTIVATED CHARCOAL
     Dosage: 750 MILLIGRAM, QD
     Route: 065
  37. CHARCOAL ACTIVATED [Suspect]
     Active Substance: ACTIVATED CHARCOAL
     Dosage: 750 MILLIGRAM, QD
     Route: 065
  38. CIPROFLOXACIN [Suspect]
     Active Substance: CIPROFLOXACIN
     Indication: Depression
     Dosage: 1000 MILLIGRAM, QD
     Route: 065
     Dates: start: 20100917
  39. CIPROFLOXACIN [Suspect]
     Active Substance: CIPROFLOXACIN
     Indication: Abdominal discomfort
     Dosage: 1000 MILLIGRAM, QD
     Route: 065
     Dates: start: 20100917
  40. CIPROFLOXACIN [Suspect]
     Active Substance: CIPROFLOXACIN
     Indication: Rheumatoid arthritis
     Dosage: 1000 MILLIGRAM, QD
     Route: 065
     Dates: start: 20100917
  41. CIPROFLOXACIN HYDROCHLORIDE [Suspect]
     Active Substance: CIPROFLOXACIN HYDROCHLORIDE
     Indication: Depression
     Dosage: 1000 MILLIGRAM, QD
     Route: 065
  42. CIPROFLOXACIN HYDROCHLORIDE [Suspect]
     Active Substance: CIPROFLOXACIN HYDROCHLORIDE
     Indication: Abdominal discomfort
     Dosage: UNK
     Route: 065
  43. CIPROFLOXACIN HYDROCHLORIDE [Suspect]
     Active Substance: CIPROFLOXACIN HYDROCHLORIDE
     Indication: Rheumatoid arthritis
     Dosage: 1000 MILLIGRAM, QD
     Route: 065
  44. CIPROFLOXACIN HYDROCHLORIDE [Suspect]
     Active Substance: CIPROFLOXACIN HYDROCHLORIDE
     Dosage: UNK
     Route: 065
  45. CIPROFLOXACIN HYDROCHLORIDE [Suspect]
     Active Substance: CIPROFLOXACIN HYDROCHLORIDE
     Dosage: 1000 MILLIGRAM, QD
     Route: 065
     Dates: start: 20100917
  46. CIPROFLOXACIN HYDROCHLORIDE [Suspect]
     Active Substance: CIPROFLOXACIN HYDROCHLORIDE
     Dosage: 1000 MILLIGRAM, QD
     Route: 065
  47. CIPROFLOXACIN HYDROCHLORIDE [Suspect]
     Active Substance: CIPROFLOXACIN HYDROCHLORIDE
     Dosage: 1000 MILLIGRAM, QD
     Route: 065
     Dates: start: 20200917
  48. CIPROFLOXACIN HYDROCHLORIDE [Suspect]
     Active Substance: CIPROFLOXACIN HYDROCHLORIDE
     Dosage: 1000 MILLIGRAM, QD
     Route: 065
     Dates: start: 20100917
  49. ENBREL [Suspect]
     Active Substance: ETANERCEPT
     Indication: Rheumatoid arthritis
     Dosage: UNK, MYCLIC PEN
     Route: 065
  50. ENBREL [Suspect]
     Active Substance: ETANERCEPT
     Dosage: 50 MILLIGRAM, QW, MYCLIC PEN
     Route: 065
     Dates: start: 20210917
  51. ENBREL [Suspect]
     Active Substance: ETANERCEPT
     Dosage: UNK, MYCLIC PEN
     Route: 065
  52. ENBREL [Suspect]
     Active Substance: ETANERCEPT
     Dosage: 50 MILLIGRAM, QW, MYCLIC PEN
     Route: 058
     Dates: start: 20100917
  53. GUANIDINE [Suspect]
     Active Substance: GUANIDINE
     Indication: Abdominal discomfort
     Dosage: 750 MILLIGRAM, 1,3-DIPHENYLGUANIDINE
     Route: 065
  54. GUANIDINE [Suspect]
     Active Substance: GUANIDINE
     Indication: Depression
     Dosage: UNK, QD,  (1,3-DIPHENYLGUANIDINE)
     Route: 065
  55. GUANIDINE [Suspect]
     Active Substance: GUANIDINE
     Dosage: 750 MILLIGRAM, 1,3-DIPHENYLGUANIDINE
     Route: 065
  56. GUANIDINE [Suspect]
     Active Substance: GUANIDINE
     Dosage: UNK, QD,  (1,3-DIPHENYLGUANIDINE)
     Route: 065
  57. GUANIDINE [Suspect]
     Active Substance: GUANIDINE
     Dosage: UNK
     Route: 065
  58. IRBESARTAN [Suspect]
     Active Substance: IRBESARTAN
     Indication: Abdominal discomfort
     Dosage: 150 MILLIGRAM, QD
     Route: 065
     Dates: start: 20100912
  59. IRBESARTAN [Suspect]
     Active Substance: IRBESARTAN
     Indication: Depression
     Dosage: 150 MILLIGRAM, QD
     Route: 065
     Dates: start: 20100917
  60. IRBESARTAN [Suspect]
     Active Substance: IRBESARTAN
     Indication: Abdominal discomfort
     Dosage: 150 GRAM, BID
     Route: 065
     Dates: start: 20100912
  61. IRBESARTAN [Suspect]
     Active Substance: IRBESARTAN
     Indication: Depression
     Dosage: 150 GRAM, QD (150 MG, ONCE PER DAY 150 MG, QD (150 MG, QD (DAILY)
     Route: 065
     Dates: start: 20100917
  62. IRBESARTAN [Suspect]
     Active Substance: IRBESARTAN
     Dosage: 150 GRAM, QD (150 MG, ONCE PER DAY 150 MG, QD (150 MG, QD (DAILY)
     Route: 065
     Dates: start: 20100917
  63. IRBESARTAN [Suspect]
     Active Substance: IRBESARTAN
     Dosage: 150 GRAM, QD (150 MG, ONCE PER DAY 150 MG, QD (150 MG, QD (DAILY)
     Route: 065
     Dates: start: 20100917
  64. IRBESARTAN [Suspect]
     Active Substance: IRBESARTAN
     Dosage: 150 GRAM, QD (150 MG, ONCE PER DAY 150 MG, QD (150 MG, QD (DAILY)
     Route: 065
     Dates: start: 20100917
  65. IRBESARTAN [Suspect]
     Active Substance: IRBESARTAN
     Dosage: 150 GRAM, QD (150 MG, ONCE PER DAY 150 MG, QD (150 MG, QD (DAILY)
     Route: 065
     Dates: start: 20100917
  66. IRBESARTAN [Suspect]
     Active Substance: IRBESARTAN
     Dosage: 150 GRAM, QD (150 MG, ONCE PER DAY 150 MG, QD (150 MG, QD (DAILY)
     Route: 065
     Dates: start: 20100917
  67. IRBESARTAN [Suspect]
     Active Substance: IRBESARTAN
     Dosage: 150 GRAM, QD (150 MG, ONCE PER DAY 150 MG, QD (150 MG, QD (DAILY)
     Route: 065
     Dates: start: 20100917
  68. IRBESARTAN [Suspect]
     Active Substance: IRBESARTAN
     Dosage: 150 GRAM, QD (150 MG, ONCE PER DAY 150 MG, QD (150 MG, QD (DAILY)
     Route: 065
     Dates: start: 20100917
  69. IRBESARTAN [Suspect]
     Active Substance: IRBESARTAN
     Dosage: 150 GRAM, QD (150 MG, ONCE PER DAY 150 MG, QD (150 MG, QD (DAILY)
     Route: 065
     Dates: start: 20100917
  70. LACTOBACILLUS RHAMNOSUS [Suspect]
     Active Substance: LACTOBACILLUS RHAMNOSUS
     Indication: Abdominal discomfort
     Dosage: 750 MILLIGRAM
     Route: 065
  71. LACTOBACILLUS RHAMNOSUS [Suspect]
     Active Substance: LACTOBACILLUS RHAMNOSUS
     Indication: Depression
     Dosage: UNK
     Route: 065
  72. METHOTREXATE [Suspect]
     Active Substance: METHOTREXATE
     Indication: Rheumatoid arthritis
     Dosage: 17.5 MILLIGRAM, QW, 17.5 MILLIGRAM, Q.W., UNK UNK, Q.W., WEEKLY, AT 17.5 (UNKNOWN UNIT),
     Route: 065
     Dates: start: 20100917
  73. METHOTREXATE [Suspect]
     Active Substance: METHOTREXATE
     Dosage: QW
     Route: 065
  74. METHOTREXATE [Suspect]
     Active Substance: METHOTREXATE
     Dosage: UNKT, UNK
     Route: 065
  75. METHOTREXATE [Suspect]
     Active Substance: METHOTREXATE
     Dosage: 18 MILLIGRAM, QW
     Route: 065
  76. METHOTREXATE [Suspect]
     Active Substance: METHOTREXATE
     Dosage: 18 MILLIGRAM, QW (18 MG, PER WEEK (18 MG, QW (UNK UNK, WEEKLY (AT 17.5, WEEKLY))
     Route: 065
     Dates: start: 20100917
  77. PHYLLOCONTIN [Suspect]
     Active Substance: AMINOPHYLLINE
     Indication: Product used for unknown indication
     Dosage: 400 MILLIGRAM, QD
     Route: 065
     Dates: start: 20100917
  78. PHYLLOCONTIN [Suspect]
     Active Substance: AMINOPHYLLINE
     Dosage: 400 MILLIGRAM, QD
     Route: 065
     Dates: start: 20100917
  79. PHYLLOCONTIN [Suspect]
     Active Substance: AMINOPHYLLINE
     Dosage: 400 MILLIGRAM, QD
     Route: 065
     Dates: start: 20100917
  80. SULFAGUANIDINE [Suspect]
     Active Substance: SULFAGUANIDINE
     Indication: Abdominal discomfort
     Dosage: 750 MILLIGRAM, QD
     Route: 065
  81. SULFAGUANIDINE [Suspect]
     Active Substance: SULFAGUANIDINE
     Dosage: 750 MILLIGRAM, QD
     Route: 065
  82. THEOPHYLLINE [Suspect]
     Active Substance: THEOPHYLLINE
     Indication: Depression
     Dosage: 750 MILLIGRAM, QD
     Route: 065
  83. THEOPHYLLINE [Suspect]
     Active Substance: THEOPHYLLINE
     Dosage: 750 MILLIGRAM, QD
     Route: 065
  84. VENLAFAXINE [Suspect]
     Active Substance: VENLAFAXINE HYDROCHLORIDE
     Indication: Rheumatoid arthritis
     Dosage: 225 MILLIGRAM, QD
     Route: 065
  85. VENLAFAXINE [Suspect]
     Active Substance: VENLAFAXINE HYDROCHLORIDE
     Indication: Depression
     Dosage: 225 MILLIGRAM, QD
     Route: 065
  86. VENLAFAXINE [Suspect]
     Active Substance: VENLAFAXINE HYDROCHLORIDE
     Dosage: 225 MILLIGRAM, QD
     Route: 065
  87. VENLAFAXINE [Suspect]
     Active Substance: VENLAFAXINE HYDROCHLORIDE
     Dosage: UNK UNK
     Route: 065
  88. VENLAFAXINE HYDROCHLORIDE [Suspect]
     Active Substance: VENLAFAXINE HYDROCHLORIDE
     Indication: Depression
     Dosage: 225 MILLIGRAM, QD
     Route: 065
  89. VENLAFAXINE HYDROCHLORIDE [Suspect]
     Active Substance: VENLAFAXINE HYDROCHLORIDE
     Indication: Rheumatoid arthritis
     Dosage: 225 MILLIGRAM, QD ( (PROLONGED RELEASE,225 MG, DAILY)
     Route: 065
  90. VENLAFAXINE HYDROCHLORIDE [Suspect]
     Active Substance: VENLAFAXINE HYDROCHLORIDE
     Route: 065
  91. VENLAFAXINE HYDROCHLORIDE [Suspect]
     Active Substance: VENLAFAXINE HYDROCHLORIDE
     Indication: Depression
     Dosage: 225 MILLIGRAM, QD
     Route: 065
  92. VENLAFAXINE HYDROCHLORIDE [Suspect]
     Active Substance: VENLAFAXINE HYDROCHLORIDE
     Indication: Rheumatoid arthritis
     Dosage: 225 MILLIGRAM, QD
     Route: 065
  93. VENLAFAXINE HYDROCHLORIDE [Suspect]
     Active Substance: VENLAFAXINE HYDROCHLORIDE
     Dosage: 225 MILLIGRAM, QD
     Route: 065
  94. VENLAFAXINE HYDROCHLORIDE [Suspect]
     Active Substance: VENLAFAXINE HYDROCHLORIDE
     Dosage: UNK
     Route: 065
  95. ZINC [Suspect]
     Active Substance: ZINC
     Indication: Depression
     Dosage: 750 MILLIGRAM, QD, DIETHYLDITHIOCARBAMATE
     Route: 065
  96. ZINC [Suspect]
     Active Substance: ZINC
     Indication: Abdominal discomfort
     Dosage: 750 MILLIGRAM, UNK
     Route: 065
  97. ZINC [Suspect]
     Active Substance: ZINC
     Dosage: UNK
     Route: 065
  98. PROBIOTICS NOS [Suspect]
     Active Substance: PROBIOTICS NOS
     Indication: Abdominal discomfort
     Dosage: 750 MILLIGRAM (UNK, UNK)
     Route: 065
  99. PROBIOTICS NOS [Suspect]
     Active Substance: PROBIOTICS NOS
     Indication: Depression
     Dosage: 750 MILLIGRAM, UNK
     Route: 065
  100. PROBIOTICS NOS [Suspect]
     Active Substance: PROBIOTICS NOS
     Route: 065
  101. METHOTREXATE SODIUM [Suspect]
     Active Substance: METHOTREXATE SODIUM
     Indication: Rheumatoid arthritis
     Dosage: 18 MILLIGRAM, QW (UNKNOWN, WEEKLY, QW (AT 17.5, WEEKLY))
     Route: 065
     Dates: start: 20100917
  102. METHOTREXATE SODIUM [Suspect]
     Active Substance: METHOTREXATE SODIUM
     Dosage: 17.5 MILLIGRAM, QW  (17.5 MILLIGRAM, Q.W., UNK UNK, Q.W., WEEKLY, AT 17.5 (UNKNOWN UNIT),)
     Route: 065
     Dates: start: 20100917
  103. METHOTREXATE SODIUM [Suspect]
     Active Substance: METHOTREXATE SODIUM
     Dosage: 17.5 MILLIGRAM, QW  (17.5 MILLIGRAM, Q.W., UNK UNK, Q.W., WEEKLY, AT 17.5 (UNKNOWN UNIT),)
     Route: 065
     Dates: start: 20100917
  104. METHOTREXATE SODIUM [Suspect]
     Active Substance: METHOTREXATE SODIUM
     Dosage: UNK ( WEEKLY (AT 17.5, WEEKLY)
     Route: 065
     Dates: start: 20100917
  105. BENDROFLUMETHIAZIDE [Concomitant]
     Active Substance: BENDROFLUMETHIAZIDE
     Indication: Pituitary tumour
     Dosage: 750 MILLIGRAM
     Route: 065
  106. BENDROFLUMETHIAZIDE [Concomitant]
     Active Substance: BENDROFLUMETHIAZIDE
     Indication: Depression
     Dosage: 750 MILLIGRAM
     Route: 065
  107. BENDROFLUMETHIAZIDE [Concomitant]
     Active Substance: BENDROFLUMETHIAZIDE
     Dosage: UNK
     Route: 065
  108. BENDROFLUMETHIAZIDE [Concomitant]
     Active Substance: BENDROFLUMETHIAZIDE
     Dosage: UNK
     Route: 065
  109. BENDROFLUMETHIAZIDE [Concomitant]
     Active Substance: BENDROFLUMETHIAZIDE
     Route: 065
  110. CABERGOLINE [Concomitant]
     Active Substance: CABERGOLINE
     Indication: Pituitary tumour
     Dosage: UNK
     Route: 065
  111. CABERGOLINE [Concomitant]
     Active Substance: CABERGOLINE
     Indication: Empty sella syndrome
     Dosage: UNK
     Route: 065
  112. CABERGOLINE [Concomitant]
     Active Substance: CABERGOLINE
     Indication: Pituitary tumour
     Dosage: UNK
     Route: 065
  113. CHARCOAL ACTIVATED [Concomitant]
     Active Substance: ACTIVATED CHARCOAL
     Indication: Product used for unknown indication
     Dosage: 750 MILLIGRAM
     Route: 065
  114. CETIRIZINE [Concomitant]
     Active Substance: CETIRIZINE HYDROCHLORIDE
     Indication: Abdominal discomfort
     Dosage: UNK
     Route: 065
  115. CETIRIZINE [Concomitant]
     Active Substance: CETIRIZINE HYDROCHLORIDE
     Dosage: UNK
     Route: 065
  116. EZETIMIBE [Concomitant]
     Active Substance: EZETIMIBE
     Indication: Product used for unknown indication
     Dosage: UNK
     Route: 065
  117. EZETIMIBE [Concomitant]
     Active Substance: EZETIMIBE
     Dosage: UNK
     Route: 065
  118. FOLIC ACID [Concomitant]
     Active Substance: FOLIC ACID
     Indication: Product used for unknown indication
     Dosage: UNK
     Route: 065
  119. LEVOTHYROXINE [Concomitant]
     Active Substance: LEVOTHYROXINE
     Indication: Abdominal discomfort
     Dosage: UNK
     Route: 016
  120. LEVOTHYROXINE [Concomitant]
     Active Substance: LEVOTHYROXINE
     Dosage: UNK
     Route: 016
  121. ORUVAIL [Concomitant]
     Active Substance: KETOPROFEN
     Indication: Empty sella syndrome
     Dosage: UNK
     Route: 065
  122. ORUVAIL [Concomitant]
     Active Substance: KETOPROFEN
     Dosage: UNK
     Route: 065
  123. ORUVAIL [Concomitant]
     Active Substance: KETOPROFEN
     Dosage: UNK
     Route: 065
  124. ORUVAIL [Concomitant]
     Active Substance: KETOPROFEN
     Dosage: UNK
     Route: 065
  125. DOXYCYCLINE [Concomitant]
     Active Substance: DOXYCYCLINE
     Indication: Pulmonary pain
     Dosage: UNK
     Route: 065
  126. THEOPHYLLINE [Concomitant]
     Active Substance: THEOPHYLLINE
     Indication: Depression
     Dosage: 750 MILLIGRAM, QD (750 MG, ONCE PER DAY, (750 MG, QD)
     Route: 065
  127. THEOPHYLLINE [Concomitant]
     Active Substance: THEOPHYLLINE
     Indication: Abdominal discomfort
  128. ACTIVATED CHARCOAL [Concomitant]
     Active Substance: ACTIVATED CHARCOAL
     Indication: Product used for unknown indication
     Dosage: UNK
     Route: 065

REACTIONS (13)
  - Amyloid arthropathy [Unknown]
  - Lower respiratory tract infection [Not Recovered/Not Resolved]
  - Abdominal discomfort [Unknown]
  - Arthropathy [Unknown]
  - Knee arthroplasty [Unknown]
  - Obesity [Unknown]
  - Pulmonary pain [Unknown]
  - Rash [Not Recovered/Not Resolved]
  - Overdose [Unknown]
  - Off label use [Unknown]
  - Product dose omission issue [Unknown]
  - Intentional product misuse [Unknown]
  - Drug abuse [Unknown]

NARRATIVE: CASE EVENT DATE: 20201001
